FAERS Safety Report 11230390 (Version 1)
Quarter: 2015Q2

REPORT INFORMATION
  Report Type: Spontaneous
  Country: US (occurrence: None)
  Receive Date: 20150630
  Receipt Date: 20150630
  Transmission Date: 20150821
  Serious: Yes (Disabling, Other)
  Sender: FDA-Public Use
  Company Number: None

PATIENT
  Age: 71 Year
  Sex: Female
  Weight: 81.65 kg

DRUGS (2)
  1. SYNTHROID [Concomitant]
     Active Substance: LEVOTHYROXINE SODIUM
  2. IMIQUIMOD. [Suspect]
     Active Substance: IMIQUIMOD
     Indication: SKIN LESION
     Dosage: CREAM 2X A DAY FOR 5 WEEKS
     Dates: start: 20150529, end: 20150623

REACTIONS (3)
  - Skin disorder [None]
  - Eye irritation [None]
  - Nightmare [None]

NARRATIVE: CASE EVENT DATE: 20150620
